FAERS Safety Report 8210722-2 (Version None)
Quarter: 2012Q1

REPORT INFORMATION
  Report Type: 
  Country: None (occurrence: None)
  Receive Date: 20120315
  Receipt Date: 20120305
  Transmission Date: 20120608
  Serious: Yes (Hospitalization)
  Sender: FDA-Public Use
  Company Number: US-BIOGENIDEC-2012BI008170

PATIENT
  Age: 72 Year
  Sex: Female

DRUGS (1)
  1. AVONEX [Suspect]
     Indication: MULTIPLE SCLEROSIS
     Route: 030
     Dates: start: 20051115

REACTIONS (5)
  - DISORIENTATION [None]
  - URINARY TRACT INFECTION [None]
  - PNEUMONIA [None]
  - INCOHERENT [None]
  - WRONG DRUG ADMINISTERED [None]
